FAERS Safety Report 13169415 (Version 6)
Quarter: 2017Q4

REPORT INFORMATION
  Report Type: Spontaneous
  Country: US (occurrence: US)
  Receive Date: 20170131
  Receipt Date: 20171121
  Transmission Date: 20180320
  Serious: Yes (Other)
  Sender: FDA-Public Use
  Company Number: US-ABBVIE-16K-163-1627500-00

PATIENT
  Sex: Female

DRUGS (1)
  1. HUMIRA [Suspect]
     Active Substance: ADALIMUMAB
     Indication: HIDRADENITIS
     Route: 058
     Dates: start: 201508

REACTIONS (9)
  - Weight decreased [Not Recovered/Not Resolved]
  - Emotional distress [Unknown]
  - Suicidal ideation [Unknown]
  - Wound haemorrhage [Recovering/Resolving]
  - Hidradenitis [Not Recovered/Not Resolved]
  - Hidradenitis [Recovered/Resolved]
  - Frustration tolerance decreased [Unknown]
  - Wound dehiscence [Recovering/Resolving]
  - Drug ineffective [Unknown]

NARRATIVE: CASE EVENT DATE: 201610
